FAERS Safety Report 24366822 (Version 2)
Quarter: 2024Q4

REPORT INFORMATION
  Report Type: Spontaneous
  Country: FR (occurrence: FR)
  Receive Date: 20240926
  Receipt Date: 20241106
  Transmission Date: 20250115
  Serious: Yes (Hospitalization, Other)
  Sender: FRESENIUS KABI
  Company Number: None

PATIENT
  Age: 24 Year
  Sex: Female
  Weight: 48 kg

DRUGS (1)
  1. LIDOCAINE [Suspect]
     Active Substance: LIDOCAINE
     Indication: Product used for unknown indication
     Dosage: UNK?FORM OF ADMIN: SOLUTION FOR INJECTION
     Route: 030
     Dates: start: 20240914, end: 20240914

REACTIONS (2)
  - Depressed level of consciousness [Recovered/Resolved]
  - Chorea [Recovered/Resolved]

NARRATIVE: CASE EVENT DATE: 20240914
